FAERS Safety Report 17811136 (Version 1)
Quarter: 2020Q2

REPORT INFORMATION
  Report Type: Spontaneous
  Country: US (occurrence: US)
  Receive Date: 20200520
  Receipt Date: 20200520
  Transmission Date: 20200714
  Serious: Yes (Life-Threatening, Hospitalization, Disabling, Other)
  Sender: FDA-Public Use
  Company Number: None

PATIENT
  Age: 42 Year
  Sex: Male
  Weight: 122 kg

DRUGS (6)
  1. ENOXAPARIN 40MG SUBQ DAILY [Concomitant]
     Dates: start: 20200513
  2. REMDESIVIR. [Suspect]
     Active Substance: REMDESIVIR
     Indication: COVID-19
     Route: 041
     Dates: start: 20200514, end: 20200515
  3. AZITHROMYCIN 500MG PO DAILY [Concomitant]
     Dates: start: 20200513, end: 20200514
  4. FAMOTIDINE 20MG PO DAILY [Concomitant]
     Dates: start: 20200515
  5. ACETAMINOPHEN 650MG PO Q4H PRN [Concomitant]
     Dates: start: 20200512
  6. ONDANSETRON 4MG IV Q6H PRN [Concomitant]
     Dates: start: 20200514, end: 20200515

REACTIONS (8)
  - Pyrexia [None]
  - Miosis [None]
  - Lung infiltration [None]
  - Hypoxia [None]
  - Tachycardia [None]
  - Eye movement disorder [None]
  - Respiratory distress [None]
  - Unresponsive to stimuli [None]

NARRATIVE: CASE EVENT DATE: 20200515
